FAERS Safety Report 4619557-0 (Version None)
Quarter: 2005Q1

REPORT INFORMATION
  Report Type: 
  Country: None (occurrence: None)
  Receive Date: 20050324
  Receipt Date: 20050314
  Transmission Date: 20050727
  Serious: Yes (Life-Threatening, Hospitalization, Other)
  Sender: FDA-Public Use
  Company Number: 2005-00924

PATIENT
  Age: 66 Year
  Sex: Female
  Weight: 63.5 kg

DRUGS (2)
  1. FERRLECIT [Suspect]
     Indication: IRON DEFICIENCY ANAEMIA
     Dosage: 125 MG, SINGLE DOSE OVER 1-2 MIN, INTRAVENOUS
     Route: 042
     Dates: start: 20050308, end: 20050308
  2. EPOETIN ALFA (EPOETIN ALFA) [Concomitant]

REACTIONS (8)
  - BLOOD BILIRUBIN INCREASED [None]
  - BLOOD LACTATE DEHYDROGENASE INCREASED [None]
  - COOMBS TEST POSITIVE [None]
  - HYPERSENSITIVITY [None]
  - INTRAVASCULAR HAEMOLYSIS [None]
  - MEDICATION ERROR [None]
  - PLEURAL EFFUSION [None]
  - RESPIRATORY ARREST [None]
